FAERS Safety Report 4988119-8 (Version None)
Quarter: 2006Q2

REPORT INFORMATION
  Report Type: 
  Country: None (occurrence: None)
  Receive Date: 20060501
  Receipt Date: 20050831
  Transmission Date: 20061013
  Serious: Yes (Hospitalization, Disabling, Other)
  Sender: FDA-Public Use
  Company Number: US-MERCK-0509USA00087

PATIENT
  Age: 59 Year
  Sex: Male
  Weight: 85 kg

DRUGS (4)
  1. VIOXX [Suspect]
     Indication: BACK PAIN
     Route: 048
     Dates: start: 20000201, end: 20041011
  2. VIOXX [Suspect]
     Route: 048
     Dates: start: 20040501, end: 20041011
  3. VIOXX [Suspect]
     Indication: INFLAMMATION
     Route: 048
     Dates: start: 20000201, end: 20041011
  4. VIOXX [Suspect]
     Route: 048
     Dates: start: 20040501, end: 20041011

REACTIONS (19)
  - ACUTE MYOCARDIAL INFARCTION [None]
  - BENIGN PROSTATIC HYPERPLASIA [None]
  - CONSTIPATION [None]
  - CORONARY ARTERY DISEASE [None]
  - CYST [None]
  - DEPRESSION [None]
  - DYSLIPIDAEMIA [None]
  - HYPERLIPIDAEMIA [None]
  - HYPERTENSION [None]
  - HYPOAESTHESIA [None]
  - HYPOTHYROIDISM [None]
  - INTERMITTENT CLAUDICATION [None]
  - INTERVERTEBRAL DISC DEGENERATION [None]
  - LUMBAR RADICULOPATHY [None]
  - MYOCARDIAL INFARCTION [None]
  - NOCTURIA [None]
  - POLYTRAUMATISM [None]
  - SPINAL CLAUDICATION [None]
  - SPONDYLOLISTHESIS [None]
